FAERS Safety Report 17226804 (Version 1)
Quarter: 2020Q1

REPORT INFORMATION
  Report Type: Spontaneous
  Country: US (occurrence: US)
  Receive Date: 20200102
  Receipt Date: 20200102
  Transmission Date: 20200409
  Serious: No
  Sender: FDA-Public Use
  Company Number: US-ASTRAZENECA-2019SF78610

PATIENT
  Sex: Female
  Weight: 83.9 kg

DRUGS (5)
  1. PREDNISONE. [Concomitant]
     Active Substance: PREDNISONE
  2. LEVAQUIN [Concomitant]
     Active Substance: LEVOFLOXACIN
  3. FASENRA [Suspect]
     Active Substance: BENRALIZUMAB
     Indication: ASTHMA
     Dosage: UNKNOWN
     Route: 058
     Dates: start: 20191121
  4. FLORAZAPAM [Concomitant]
  5. LORAZAPAM [Concomitant]
     Active Substance: LORAZEPAM
     Indication: SLEEP DISORDER

REACTIONS (19)
  - Laryngitis [Unknown]
  - Dizziness [Not Recovered/Not Resolved]
  - Back pain [Not Recovered/Not Resolved]
  - Throat irritation [Recovered/Resolved]
  - Somnolence [Recovered/Resolved]
  - Pain in extremity [Not Recovered/Not Resolved]
  - Arthralgia [Not Recovered/Not Resolved]
  - Gastric disorder [Not Recovered/Not Resolved]
  - Feeling abnormal [Not Recovered/Not Resolved]
  - Sleep disorder [Not Recovered/Not Resolved]
  - Haemorrhage [Recovered/Resolved]
  - Malaise [Not Recovered/Not Resolved]
  - Sinusitis [Unknown]
  - Haemoptysis [Recovered/Resolved]
  - Muscle spasms [Not Recovered/Not Resolved]
  - Head discomfort [Not Recovered/Not Resolved]
  - Swelling face [Not Recovered/Not Resolved]
  - Oropharyngeal pain [Not Recovered/Not Resolved]
  - Dysphonia [Not Recovered/Not Resolved]
